FAERS Safety Report 22607099 (Version 1)
Quarter: 2023Q2

REPORT INFORMATION
  Report Type: Spontaneous
  Country: AU (occurrence: AU)
  Receive Date: 20230615
  Receipt Date: 20230615
  Transmission Date: 20230722
  Serious: No
  Sender: FDA-Public Use
  Company Number: AU-009507513-2306AUS003470

PATIENT
  Age: 74 Year
  Sex: Female

DRUGS (3)
  1. LAGEVRIO [Suspect]
     Active Substance: MOLNUPIRAVIR
     Dosage: UNK
     Dates: start: 202207
  2. LAGEVRIO [Suspect]
     Active Substance: MOLNUPIRAVIR
     Dosage: 8 DOSAGE FORM
     Dates: start: 20230605
  3. LAGEVRIO [Suspect]
     Active Substance: MOLNUPIRAVIR
     Dosage: 4 DOSAGE FORM
     Dates: start: 20230606

REACTIONS (15)
  - COVID-19 [Unknown]
  - Malaise [Unknown]
  - Vertigo [Unknown]
  - Fatigue [Unknown]
  - Dysphagia [Unknown]
  - Dyspepsia [Unknown]
  - Abdominal discomfort [Unknown]
  - Ill-defined disorder [Unknown]
  - Poor quality product administered [Unknown]
  - Product taste abnormal [Unknown]
  - Product odour abnormal [Unknown]
  - Product physical issue [Unknown]
  - Product expiration date issue [Unknown]
  - Expired product administered [Unknown]
  - Product colour issue [Unknown]

NARRATIVE: CASE EVENT DATE: 20230601
